FAERS Safety Report 8457752-3 (Version None)
Quarter: 2012Q2

REPORT INFORMATION
  Report Type: 
  Country: None (occurrence: None)
  Receive Date: 20120618
  Receipt Date: 20120618
  Transmission Date: 20120825
  Serious: Yes (Disabling)
  Sender: FDA-Public Use
  Company Number: None

PATIENT
  Age: 37 Year
  Sex: Female
  Weight: 75.2971 kg

DRUGS (1)
  1. DOXYCYCLINE [Suspect]

REACTIONS (1)
  - STEVENS-JOHNSON SYNDROME [None]
